FAERS Safety Report 21735799 (Version 1)
Quarter: 2022Q4

REPORT INFORMATION
  Report Type: Spontaneous
  Country: US (occurrence: US)
  Receive Date: 20221215
  Receipt Date: 20221215
  Transmission Date: 20230112
  Serious: Yes (Hospitalization, Other)
  Sender: FDA-Public Use
  Company Number: US-GILEAD-2022-0609067

PATIENT
  Age: 71 Year
  Sex: Male

DRUGS (5)
  1. VEKLURY [Suspect]
     Active Substance: REMDESIVIR
     Indication: COVID-19
     Dosage: INITIAL DOSE 200 MG, ONCE, ON DAY ONE (ADDED ON DAY TWO OF ADMISSION)
     Route: 042
  2. VEKLURY [Suspect]
     Active Substance: REMDESIVIR
     Dosage: 100 MG, QD, FOR THE NEXT FOUR DAYS
     Route: 042
  3. CARVEDILOL [Concomitant]
     Active Substance: CARVEDILOL
     Indication: Atrial flutter
     Dosage: REDUCED AND EVENTUALLY DISCONTINUED
  4. CARVEDILOL [Concomitant]
     Active Substance: CARVEDILOL
     Indication: Cardiac failure congestive
  5. DEXAMETHASONE [Concomitant]
     Active Substance: DEXAMETHASONE
     Indication: COVID-19
     Dosage: 6 MG, QD
     Route: 042

REACTIONS (1)
  - Bradycardia [Not Recovered/Not Resolved]
